FAERS Safety Report 8725427 (Version 3)
Quarter: 2012Q4

REPORT INFORMATION
  Report Type: 
  Country: US (occurrence: US)
  Receive Date: 20120815
  Receipt Date: 20120918
  Transmission Date: 20130627
  Serious: Yes (Other)
  Sender: FDA-Public Use
  Company Number: CHPA2012US015335

PATIENT
  Age: 32 Year
  Sex: Female

DRUGS (1)
  1. TRANSDERM SCOP [Suspect]
     Indication: IMPAIRED GASTRIC EMPTYING
     Dosage: 1 PATCH, EVERY 72 HOURS
     Route: 062
     Dates: start: 20120501, end: 20120728

REACTIONS (12)
  - Nausea [Recovered/Resolved]
  - Vomiting [Recovered/Resolved]
  - Chemical injury [Not Recovered/Not Resolved]
  - Skin exfoliation [Not Recovered/Not Resolved]
  - Disorientation [Recovered/Resolved]
  - Skin sensitisation [Not Recovered/Not Resolved]
  - Mydriasis [Recovered/Resolved]
  - Ear disorder [Not Recovered/Not Resolved]
  - Off label use [Unknown]
  - Dry skin [Not Recovered/Not Resolved]
  - Dizziness [Recovered/Resolved]
  - Overdose [Unknown]
